FAERS Safety Report 20679487 (Version 1)
Quarter: 2022Q2

REPORT INFORMATION
  Report Type: Spontaneous
  Country: US (occurrence: None)
  Receive Date: 20220405
  Receipt Date: 20220405
  Transmission Date: 20220720
  Serious: Yes (Life-Threatening, Hospitalization)
  Sender: FDA-Public Use
  Company Number: None

PATIENT
  Age: 82 Year
  Sex: Female
  Weight: 67.5 kg

DRUGS (4)
  1. MUPIROCIN [Suspect]
     Active Substance: MUPIROCIN
     Indication: Nasal discomfort
     Dosage: OTHER QUANTITY : 15 TUBE;?FREQUENCY : TWICE A DAY;?OTHER ROUTE : NASALLY;?
     Route: 050
     Dates: start: 20220221, end: 20220223
  2. VITAMIN D [Concomitant]
     Active Substance: VITAMIN D NOS
  3. SLO-MAG [Concomitant]
  4. A-RADS2 [Concomitant]

REACTIONS (7)
  - Muscle spasms [None]
  - Muscle spasticity [None]
  - Neck pain [None]
  - Cold sweat [None]
  - Speech disorder [None]
  - Intracardiac thrombus [None]
  - Cerebrovascular accident [None]

NARRATIVE: CASE EVENT DATE: 20220301
